FAERS Safety Report 10409813 (Version 1)
Quarter: 2014Q2

REPORT INFORMATION
  Report Type: Spontaneous
  Country: US (occurrence: None)
  Receive Date: 20140604
  Receipt Date: 20140604
  Transmission Date: 20141212
  Serious: No
  Sender: FDA-Public Use
  Company Number: 163-POMAL-14043482

PATIENT
  Age: 56 Year
  Sex: Female

DRUGS (20)
  1. POMALYST (POMALIDOMIDE) (2 MILLIGRAM, CAPSULES) [Suspect]
     Indication: PLASMA CELL MYELOMA
     Route: 048
     Dates: start: 20130827
  2. ALEVE (NAPROXEN SODIUM) [Concomitant]
  3. KUPROLIS (CARFILZOMIB) [Concomitant]
  4. PROBIOTIC (BIFIDOBACTERIUM LACTIS) [Concomitant]
  5. TYLENOL (PARACETAMOL) [Concomitant]
  6. VITAMIN B1 (THIAMINE HYDROCHLORIDE) [Concomitant]
  7. VITAMIN B12 (CYANOCOBALAMIN) [Concomitant]
  8. VITAMIN D (ERGOCALCIFEROL) [Concomitant]
  9. ZANTAC (RANITIDINE HYDROCHLORIDE) [Concomitant]
  10. ZOMETA (ZOLEDRONIC ACID) [Concomitant]
  11. METOCLOPRAMIDE HCL (METOCLOPRAMIDE HYDROCHLORIDE) [Concomitant]
  12. GABAPENTIN (GABAPENTIN) [Concomitant]
  13. PATADAY (OLOPATADINE HYDROCHLORIDE) [Concomitant]
  14. SYNTHROID (LEVOTHYROXINE SODIUM) [Concomitant]
  15. LORAZEPAM (LORAZEPAM) [Concomitant]
  16. ACYCLOVIR (ACICLOVIR) [Concomitant]
  17. FUROSEMIDE (FUROSEMIDE) [Concomitant]
  18. POTASSIUM CHLORIDE (POOTASSIUM CHLORIDE) [Concomitant]
  19. TRIAMCINOLONE ACETONIDE (TRIAMCINOLONE ACETONIDE) [Concomitant]
  20. PROMETHAZINE HCL (PROMETHAZINE HYDROCHLORIDE) [Concomitant]

REACTIONS (2)
  - Gastrooesophageal reflux disease [None]
  - Nausea [None]
